FAERS Safety Report 6991690-8 (Version None)
Quarter: 2010Q3

REPORT INFORMATION
  Report Type: 
  Country: None (occurrence: None)
  Receive Date: 20100917
  Receipt Date: 20100907
  Transmission Date: 20110219
  Serious: Yes (Hospitalization, Other)
  Sender: FDA-Public Use
  Company Number: PHFR2010GB01949

PATIENT
  Sex: Female

DRUGS (2)
  1. CLOZARIL [Suspect]
     Indication: SCHIZOPHRENIA
     Dosage: 100 MG, QD
     Route: 048
     Dates: start: 20041221, end: 20100816
  2. HALOPERIDOL [Concomitant]
     Indication: SCHIZOPHRENIA
     Dosage: 5 MG, UNK

REACTIONS (8)
  - ABDOMINAL PAIN [None]
  - CARDIAC FAILURE [None]
  - CARDIOMYOPATHY [None]
  - FLUID RETENTION [None]
  - HEPATIC CIRRHOSIS [None]
  - PALLOR [None]
  - VENTRICULAR TACHYCARDIA [None]
  - WEIGHT DECREASED [None]
